FAERS Safety Report 25106592 (Version 1)
Quarter: 2025Q1

REPORT INFORMATION
  Report Type: Spontaneous
  Country: CN (occurrence: CN)
  Receive Date: 20250321
  Receipt Date: 20250321
  Transmission Date: 20250408
  Serious: Yes (Hospitalization)
  Sender: Kenvue
  Company Number: CN-KENVUE-20250305773

PATIENT

DRUGS (3)
  1. ACETAMINOPHEN [Suspect]
     Active Substance: ACETAMINOPHEN
     Indication: Pyrexia
     Dosage: 3 MILLILITER, FOUR TIME A DAY
     Route: 048
     Dates: start: 20250217
  2. CHILDRENS MOTRIN [Suspect]
     Active Substance: IBUPROFEN
     Indication: Pyrexia
     Dosage: 4 MILLILITER, FOUR TIME A DAY
     Route: 048
     Dates: start: 20250217
  3. PERAMIVIR [Concomitant]
     Active Substance: PERAMIVIR
     Indication: Product used for unknown indication
     Route: 065
     Dates: start: 202502

REACTIONS (3)
  - Hepatic function abnormal [Recovering/Resolving]
  - Incorrect product administration duration [Unknown]
  - Product administration error [Unknown]

NARRATIVE: CASE EVENT DATE: 20250217
